FAERS Safety Report 9449560 (Version 7)
Quarter: 2014Q1

REPORT INFORMATION
  Report Type: Spontaneous
  Country: AR (occurrence: AR)
  Receive Date: 20130809
  Receipt Date: 20140211
  Transmission Date: 20141002
  Serious: Yes (Other)
  Sender: FDA-Public Use
  Company Number: AR-AMGEN-ARGSP2013056065

PATIENT
  Age: 71 Year
  Sex: Female

DRUGS (2)
  1. ENBREL [Suspect]
     Indication: PSORIATIC ARTHROPATHY
     Dosage: 25 MG, 2X/WEEK
     Route: 065
     Dates: start: 20060728
  2. METHOTREXATE [Concomitant]
     Dosage: 7.5 MG, TWICE WEEKLY

REACTIONS (9)
  - Cataract [Recovering/Resolving]
  - Renal disorder [Recovered/Resolved]
  - Pain in extremity [Not Recovered/Not Resolved]
  - Red blood cell sedimentation rate increased [Recovered/Resolved]
  - Local swelling [Not Recovered/Not Resolved]
  - Feeling abnormal [Unknown]
  - Astigmatism [Recovered/Resolved]
  - Psoriasis [Not Recovered/Not Resolved]
  - Urinary tract infection [Recovered/Resolved]
